FAERS Safety Report 7869778-9 (Version None)
Quarter: 2011Q4

REPORT INFORMATION
  Report Type: 
  Country: None (occurrence: None)
  Receive Date: 20111028
  Receipt Date: 20111028
  Transmission Date: 20120403
  Serious: Yes (Other)
  Sender: FDA-Public Use
  Company Number: None

PATIENT
  Sex: Male
  Weight: 128.8216 kg

DRUGS (1)
  1. AVASTIN [Suspect]
     Indication: LUNG NEOPLASM MALIGNANT
     Dosage: 1500MG EVERY 3 WEEK IV
     Route: 042
     Dates: start: 20110713, end: 20111007

REACTIONS (1)
  - PULMONARY EMBOLISM [None]
